FAERS Safety Report 9494422 (Version 2)
Quarter: 2013Q3

REPORT INFORMATION
  Report Type: Spontaneous
  Country: US (occurrence: None)
  Receive Date: 20130830
  Receipt Date: 20130905
  Transmission Date: 20140515
  Serious: Yes (Hospitalization)
  Sender: FDA-Public Use
  Company Number: 2013036637

PATIENT
  Sex: Male
  Weight: 74.84 kg

DRUGS (19)
  1. HIZENTRA [Suspect]
     Indication: IMMUNODEFICIENCY COMMON VARIABLE
     Dosage: 8 G 1X/WEEK, IN THREE SITES OVER 1-2 HOURS SUBCUTANEOUS
  2. CIALIS (TADALAFIL) [Concomitant]
  3. XANAX (ALPRAZOLAM) [Concomitant]
  4. AVELOX (MOXIFLOXACIN HYDROCHLORIDE) [Concomitant]
  5. ROBAXIN (METHOCARBAMOL) [Concomitant]
  6. NAPROXEN (NAPROXEN) [Concomitant]
  7. PRAVASTATIN SODIUM (PRAVASTATIN SODIUM) [Concomitant]
  8. ADVAIR (SERETIDE /01420901/) [Concomitant]
  9. NEXIUM (ESOMEPRAZOLE MAGNESIUM) [Concomitant]
  10. LMX (LIDOCAINE) [Concomitant]
  11. MOBIC (MELOXICAM) [Concomitant]
  12. FLOMAX (MORNIFLUMATE) [Concomitant]
  13. SPIRIVA (TIOTROPIUM BROMIDE) [Concomitant]
  14. HYDROCODONE ACETAMINOPHEN (VICODIN) [Concomitant]
  15. PROAIR (PROCATEROL HYDROCHLORIDE) [Concomitant]
  16. CORRECTOL (BISACODYL) [Concomitant]
  17. ASPIRIN (ACETYLSALICYLIC ACID) [Concomitant]
  18. DIPHENHYDRAMINE (DIPHENHYDRAMINE) [Concomitant]
  19. EPIPEN (EPINEPHRINE) [Concomitant]

REACTIONS (4)
  - Respiratory failure [None]
  - Heart valve replacement [None]
  - Infusion site swelling [None]
  - Infusion site reaction [None]
